FAERS Safety Report 12971210 (Version 3)
Quarter: 2018Q4

REPORT INFORMATION
  Report Type: Spontaneous
  Country: US (occurrence: US)
  Receive Date: 20161123
  Receipt Date: 20181105
  Transmission Date: 20190204
  Serious: No
  Sender: FDA-Public Use
  Company Number: US-JAZZ-2016-US-019425

PATIENT
  Sex: Female

DRUGS (13)
  1. CLONAZEPAM. [Concomitant]
     Active Substance: CLONAZEPAM
  2. ALLEGRA ALLERGY [Concomitant]
     Active Substance: FEXOFENADINE HYDROCHLORIDE
  3. ADDERALL [Suspect]
     Active Substance: AMPHETAMINE ASPARTATE\AMPHETAMINE SULFATE\DEXTROAMPHETAMINE SACCHARATE\DEXTROAMPHETAMINE SULFATE
     Dosage: 5 MG, UNK
  4. XYREM [Suspect]
     Active Substance: SODIUM OXYBATE
     Dosage: 4.5 G, BID
     Route: 048
     Dates: start: 201606
  5. NUVIGIL [Concomitant]
     Active Substance: ARMODAFINIL
  6. XYREM [Suspect]
     Active Substance: SODIUM OXYBATE
     Indication: NARCOLEPSY
     Dosage: 2.25 G, BID
     Route: 048
     Dates: start: 201512, end: 201512
  7. VICKS NYQUIL COLD + FLU [Concomitant]
  8. ADDERALL [Suspect]
     Active Substance: AMPHETAMINE ASPARTATE\AMPHETAMINE SULFATE\DEXTROAMPHETAMINE SACCHARATE\DEXTROAMPHETAMINE SULFATE
     Indication: PRODUCT USED FOR UNKNOWN INDICATION
     Dosage: 10 MG, UNK
  9. MODAFINIL. [Concomitant]
     Active Substance: MODAFINIL
  10. XYREM [Suspect]
     Active Substance: SODIUM OXYBATE
     Indication: CATAPLEXY
     Dosage: DOSE ADJUSTMENTS
     Route: 048
     Dates: start: 201512, end: 201606
  11. CLARITIN [Concomitant]
     Active Substance: LORATADINE
  12. VITAMIN E                          /00110501/ [Concomitant]
     Active Substance: TOCOPHEROL
  13. ESCITALOPRAM [Concomitant]
     Active Substance: ESCITALOPRAM OXALATE

REACTIONS (3)
  - Heart rate increased [Not Recovered/Not Resolved]
  - Fibromyalgia [Unknown]
  - Arthritis [Unknown]
